FAERS Safety Report 16183106 (Version 1)
Quarter: 2019Q2

REPORT INFORMATION
  Report Type: Spontaneous
  Country: CA (occurrence: CA)
  Receive Date: 20190411
  Receipt Date: 20190411
  Transmission Date: 20190711
  Serious: Yes (Other)
  Sender: FDA-Public Use
  Company Number: CA-ROCHE-2300883

PATIENT
  Age: 52 Year
  Sex: Female
  Weight: 56 kg

DRUGS (3)
  1. XOLAIR [Suspect]
     Active Substance: OMALIZUMAB
     Indication: ASTHMA
     Route: 058
  2. SYNTHROID [Concomitant]
     Active Substance: LEVOTHYROXINE SODIUM
     Indication: PRODUCT USED FOR UNKNOWN INDICATION
     Dosage: UNK
     Route: 065
  3. FENTANYL CITRATE. [Suspect]
     Active Substance: FENTANYL CITRATE
     Indication: PRODUCT USED FOR UNKNOWN INDICATION
     Route: 065

REACTIONS (44)
  - Benign ovarian tumour [Not Recovered/Not Resolved]
  - Blood pressure decreased [Not Recovered/Not Resolved]
  - Cough [Not Recovered/Not Resolved]
  - Fatigue [Not Recovered/Not Resolved]
  - Nervousness [Not Recovered/Not Resolved]
  - Pneumonia [Not Recovered/Not Resolved]
  - Lung disorder [Not Recovered/Not Resolved]
  - Malaise [Not Recovered/Not Resolved]
  - Nasopharyngitis [Not Recovered/Not Resolved]
  - Tendonitis [Not Recovered/Not Resolved]
  - Wound [Not Recovered/Not Resolved]
  - Feeling hot [Not Recovered/Not Resolved]
  - Hypersensitivity [Not Recovered/Not Resolved]
  - Induration [Not Recovered/Not Resolved]
  - Ligament rupture [Not Recovered/Not Resolved]
  - Nasal pruritus [Not Recovered/Not Resolved]
  - Oxygen saturation decreased [Not Recovered/Not Resolved]
  - Productive cough [Not Recovered/Not Resolved]
  - Pulmonary fibrosis [Not Recovered/Not Resolved]
  - Weight decreased [Not Recovered/Not Resolved]
  - Ligament sprain [Not Recovered/Not Resolved]
  - Limb injury [Not Recovered/Not Resolved]
  - Lung infection [Not Recovered/Not Resolved]
  - Pneumonitis [Not Recovered/Not Resolved]
  - Secretion discharge [Not Recovered/Not Resolved]
  - Fall [Not Recovered/Not Resolved]
  - Injection site erythema [Not Recovered/Not Resolved]
  - Musculoskeletal pain [Not Recovered/Not Resolved]
  - Bronchitis [Not Recovered/Not Resolved]
  - Dyspnoea [Not Recovered/Not Resolved]
  - Headache [Not Recovered/Not Resolved]
  - Injection site reaction [Not Recovered/Not Resolved]
  - Neck pain [Not Recovered/Not Resolved]
  - Respiratory tract congestion [Not Recovered/Not Resolved]
  - Thyroid cancer [Not Recovered/Not Resolved]
  - Blood immunoglobulin E increased [Not Recovered/Not Resolved]
  - Brain neoplasm benign [Not Recovered/Not Resolved]
  - Ear infection [Not Recovered/Not Resolved]
  - Erythema [Not Recovered/Not Resolved]
  - Injection site induration [Not Recovered/Not Resolved]
  - Post procedural complication [Not Recovered/Not Resolved]
  - Sinusitis [Not Recovered/Not Resolved]
  - Drug ineffective [Unknown]
  - Neuromyopathy [Not Recovered/Not Resolved]
